FAERS Safety Report 5701215-2 (Version None)
Quarter: 2008Q2

REPORT INFORMATION
  Report Type: 
  Country: None (occurrence: None)
  Receive Date: 20080410
  Receipt Date: 20080313
  Transmission Date: 20081010
  Serious: No
  Sender: FDA-Public Use
  Company Number: US-BOEHRINGER INGELHEIM GMBH, GERMANY-2008-BP-03976BP

PATIENT
  Sex: Female

DRUGS (7)
  1. SPIRIVA [Suspect]
     Indication: CHRONIC OBSTRUCTIVE PULMONARY DISEASE
     Route: 055
     Dates: start: 20070901
  2. LISINOPRIL [Concomitant]
     Indication: CARDIAC DISORDER
     Route: 048
  3. COREG [Concomitant]
     Indication: CARDIAC DISORDER
     Route: 048
  4. LIPITOR [Concomitant]
     Indication: CARDIAC DISORDER
     Route: 048
  5. SYNTHROID [Concomitant]
     Indication: THYROID DISORDER
     Route: 048
  6. ASPIRIN [Concomitant]
     Indication: CARDIAC DISORDER
     Route: 048
  7. VITAMINS [Concomitant]
     Indication: MEDICAL DIET
     Route: 048

REACTIONS (3)
  - AGEUSIA [None]
  - COUGH [None]
  - INCREASED UPPER AIRWAY SECRETION [None]
